FAERS Safety Report 19477793 (Version 1)
Quarter: 2021Q2

REPORT INFORMATION
  Report Type: Spontaneous
  Country: US (occurrence: US)
  Receive Date: 20210630
  Receipt Date: 20210630
  Transmission Date: 20210717
  Serious: No
  Sender: FDA-Public Use
  Company Number: US-KRAMERLABS-2021-US-009090

PATIENT
  Age: 18 Year
  Sex: Male
  Weight: 58.06 kg

DRUGS (1)
  1. NIZORAL A?D [Suspect]
     Active Substance: KETOCONAZOLE
     Indication: PRODUCT USED FOR UNKNOWN INDICATION
     Dosage: USED EVERYDAY APPROXIMATELY FOR 5?6 MONTHS
     Route: 061
     Dates: start: 202004, end: 202010

REACTIONS (3)
  - Intentional product misuse [Recovered/Resolved]
  - Hair colour changes [Not Recovered/Not Resolved]
  - Inappropriate schedule of product administration [Recovered/Resolved]

NARRATIVE: CASE EVENT DATE: 2020
